FAERS Safety Report 23217011 (Version 2)
Quarter: 2024Q2

REPORT INFORMATION
  Report Type: Spontaneous
  Country: US (occurrence: US)
  Receive Date: 20231122
  Receipt Date: 20240405
  Transmission Date: 20240715
  Serious: Yes (Other)
  Sender: FDA-Public Use
  Company Number: US-ELI_LILLY_AND_COMPANY-US202311011055

PATIENT
  Age: 18 Year
  Weight: 129 kg

DRUGS (6)
  1. ZYPREXA RELPREVV [Suspect]
     Active Substance: OLANZAPINE PAMOATE
     Indication: Schizoaffective disorder bipolar type
     Dosage: 300 MG, UNKNOWN
     Route: 030
     Dates: start: 20231109
  2. ZYPREXA RELPREVV [Suspect]
     Active Substance: OLANZAPINE PAMOATE
     Indication: Schizoaffective disorder bipolar type
     Dosage: 300 MG, UNKNOWN
     Route: 030
     Dates: start: 20231109
  3. ZYPREXA RELPREVV [Suspect]
     Active Substance: OLANZAPINE PAMOATE
     Indication: Schizoaffective disorder bipolar type
     Dosage: 300 MG, UNKNOWN
     Route: 030
     Dates: start: 20231109
  4. TRAZODONE [Concomitant]
     Active Substance: TRAZODONE HYDROCHLORIDE
     Indication: Product used for unknown indication
     Dosage: 100 MG, UNKNOWN
     Dates: start: 20230920
  5. LAMICTAL [Concomitant]
     Active Substance: LAMOTRIGINE
     Indication: Product used for unknown indication
     Dosage: 200 MG, UNKNOWN
     Dates: start: 20231101
  6. DEPAKOTE [Concomitant]
     Active Substance: DIVALPROEX SODIUM
     Indication: Product used for unknown indication
     Dosage: 1500 MG, UNKNOWN
     Dates: start: 20230920

REACTIONS (3)
  - Post-injection delirium sedation syndrome [Recovered/Resolved]
  - Dizziness [Unknown]
  - Fatigue [Unknown]

NARRATIVE: CASE EVENT DATE: 20231109
